FAERS Safety Report 13934184 (Version 1)
Quarter: 2017Q3

REPORT INFORMATION
  Report Type: Spontaneous
  Country: FR (occurrence: FR)
  Receive Date: 20170905
  Receipt Date: 20170905
  Transmission Date: 20171127
  Serious: Yes (Other)
  Sender: FDA-Public Use
  Company Number: FR-ROCHE-1984219

PATIENT
  Age: 24 Year
  Sex: Male

DRUGS (5)
  1. COTELLIC [Suspect]
     Active Substance: COBIMETINIB
     Indication: MALIGNANT MELANOMA
     Route: 048
     Dates: start: 20161118, end: 201706
  2. ECSTASY [Concomitant]
     Active Substance: MIDOMAFETAMINE
     Route: 065
     Dates: start: 20170720
  3. ZELBORAF [Suspect]
     Active Substance: VEMURAFENIB
     Route: 048
     Dates: end: 20170707
  4. ALPRAZOLAM. [Concomitant]
     Active Substance: ALPRAZOLAM
     Dosage: TOTAL 4 TABLETS
     Route: 065
  5. ZELBORAF [Suspect]
     Active Substance: VEMURAFENIB
     Indication: MALIGNANT MELANOMA
     Route: 048
     Dates: start: 20161118

REACTIONS (4)
  - Diarrhoea [Recovered/Resolved]
  - Maculopathy [Not Recovered/Not Resolved]
  - Hepatitis cholestatic [Recovering/Resolving]
  - Renal failure [Recovered/Resolved]

NARRATIVE: CASE EVENT DATE: 20170606
